FAERS Safety Report 25487546 (Version 1)
Quarter: 2025Q2

REPORT INFORMATION
  Report Type: Spontaneous
  Country: SA (occurrence: SA)
  Receive Date: 20250627
  Receipt Date: 20250627
  Transmission Date: 20250717
  Serious: Yes (Life-Threatening, Other)
  Sender: ALKEM
  Company Number: SA-ALKEM LABORATORIES LIMITED-US-ALKEM-2025-06640

PATIENT
  Age: 27 Year
  Sex: Male

DRUGS (2)
  1. LAMOTRIGINE [Suspect]
     Active Substance: LAMOTRIGINE
     Indication: Generalised tonic-clonic seizure
     Dosage: 100 MILLIGRAM, BID (TWICE DAILY)
     Route: 065
  2. LEVETIRACETAM [Concomitant]
     Active Substance: LEVETIRACETAM
     Indication: Generalised tonic-clonic seizure
     Dosage: 1000 MILLIGRAM, BID (TWICE DAILY)
     Route: 065

REACTIONS (1)
  - Brugada syndrome [Recovered/Resolved]
